FAERS Safety Report 5901779-X (Version None)
Quarter: 2008Q3

REPORT INFORMATION
  Report Type: 
  Country: None (occurrence: None)
  Receive Date: 20080925
  Receipt Date: 20080912
  Transmission Date: 20090109
  Serious: Yes (Disabling, Other)
  Sender: FDA-Public Use
  Company Number: 107#03#2008-04636

PATIENT
  Age: 51 Year
  Sex: Female

DRUGS (3)
  1. MIRTAZAPINE [Suspect]
     Indication: ANXIETY
     Dosage: 30 MG INCREASED TO 45 MG, ORAL
     Route: 048
     Dates: start: 20070801, end: 20080824
  2. MIRTAZAPINE [Suspect]
     Indication: PANIC ATTACK
     Dosage: 30 MG INCREASED TO 45 MG, ORAL
     Route: 048
     Dates: start: 20070801, end: 20080824
  3. LANSOPRAZOLE (LANSOPRAZOL [Concomitant]

REACTIONS (3)
  - ANXIETY [None]
  - DRUG INEFFECTIVE [None]
  - PANIC REACTION [None]
